FAERS Safety Report 13131290 (Version 1)
Quarter: 2017Q1

REPORT INFORMATION
  Report Type: Spontaneous
  Country: CZ (occurrence: CZ)
  Receive Date: 20170119
  Receipt Date: 20170119
  Transmission Date: 20170428
  Serious: Yes (Other)
  Sender: FDA-Public Use
  Company Number: CZ-FRESENIUS KABI-FK201700528

PATIENT
  Age: 43 Year
  Sex: Male

DRUGS (3)
  1. BLEOMYCIN [Suspect]
     Active Substance: BLEOMYCIN SULFATE
     Indication: TESTICULAR GERM CELL TUMOUR
     Route: 065
     Dates: start: 200912, end: 201001
  2. ETOPOSIDE (MANUFACTURER UNKNOWN) [Suspect]
     Active Substance: ETOPOSIDE
     Indication: TESTICULAR GERM CELL TUMOUR
     Route: 065
     Dates: start: 200912, end: 201001
  3. CISPLATIN (MANUFACTURER UNKNOWN) [Suspect]
     Active Substance: CISPLATIN
     Indication: TESTICULAR GERM CELL TUMOUR
     Route: 065
     Dates: start: 200912, end: 201001

REACTIONS (4)
  - Nausea [Unknown]
  - Neuropathy peripheral [Unknown]
  - Thrombocytopenia [Unknown]
  - Neutropenia [Unknown]
